FAERS Safety Report 24237220 (Version 7)
Quarter: 2025Q2

REPORT INFORMATION
  Report Type: Report from Study
  Country: US (occurrence: US)
  Receive Date: 20240822
  Receipt Date: 20250508
  Transmission Date: 20250716
  Serious: Yes (Death, Hospitalization)
  Sender: INSMED
  Company Number: US-INSMED-2024-02558-USAA

PATIENT
  Sex: Male

DRUGS (2)
  1. ARIKAYCE [Suspect]
     Active Substance: AMIKACIN
     Indication: Mycobacterium avium complex infection
     Dosage: 590 MILLIGRAM, QD
     Route: 055
     Dates: start: 20240402, end: 2024
  2. MINOCYCLINE [Concomitant]
     Active Substance: MINOCYCLINE HYDROCHLORIDE
     Indication: Product used for unknown indication
     Route: 065

REACTIONS (6)
  - Death [Fatal]
  - Hospitalisation [Unknown]
  - Pneumonia [Recovered/Resolved]
  - Cough [Recovering/Resolving]
  - Diarrhoea [Unknown]
  - Therapy interrupted [Unknown]

NARRATIVE: CASE EVENT DATE: 20240101
